FAERS Safety Report 9471747 (Version 8)
Quarter: 2015Q1

REPORT INFORMATION
  Report Type: Spontaneous
  Country: US (occurrence: US)
  Receive Date: 20130822
  Receipt Date: 20150323
  Transmission Date: 20150721
  Serious: Yes (Other)
  Sender: FDA-Public Use
  Company Number: US-GLAXOSMITHKLINE-A1035757A

PATIENT
  Age: 52 Year
  Sex: Female

DRUGS (13)
  1. FLOLAN [Suspect]
     Active Substance: EPOPROSTENOL SODIUM
     Dosage: UNK
     Dates: start: 20130614
  2. FLOLAN [Suspect]
     Active Substance: EPOPROSTENOL SODIUM
     Dosage: UNK
     Dates: start: 20130614
  3. FLOLAN [Suspect]
     Active Substance: EPOPROSTENOL SODIUM
     Dosage: 20 NG/KG/MIN CONTINUOUSLY; CONCENTRATION 15,000 NG/ML; 1.5 MG VIAL STRENGTH; PUMP RATE: 66 ML/DAY
     Route: 042
     Dates: start: 20130614
  4. FLOLAN [Suspect]
     Active Substance: EPOPROSTENOL SODIUM
     Dosage: 20 NG/KG/MIN (CONCENTRATION 45,000 NG/ML, PUMP RATE 66 ML/DAY, VIAL STRENGTH 1.5 MG), CO
     Route: 042
  5. FLOLAN [Suspect]
     Active Substance: EPOPROSTENOL SODIUM
     Dosage: UNK
     Dates: start: 20130614
  6. REVATIO [Concomitant]
     Active Substance: SILDENAFIL CITRATE
  7. LETAIRIS [Concomitant]
     Active Substance: AMBRISENTAN
  8. WARFARIN [Concomitant]
     Active Substance: WARFARIN
  9. FLOLAN [Suspect]
     Active Substance: EPOPROSTENOL SODIUM
     Indication: PULMONARY ARTERIAL HYPERTENSION
     Dosage: 6 NG/KG/MIN CONTINUOUSLY (CONCENTRATION 15,000 NG/ML; 1.5 MG VIAL STRENGTH).10 NG/KG/MIN CONTIN[...]
     Route: 042
     Dates: start: 20130614
  10. FLOLAN [Suspect]
     Active Substance: EPOPROSTENOL SODIUM
     Dosage: UNK
     Dates: start: 20130614
  11. FLOLAN [Suspect]
     Active Substance: EPOPROSTENOL SODIUM
     Dosage: UNK
     Dates: start: 20130614
  12. FLOLAN [Suspect]
     Active Substance: EPOPROSTENOL SODIUM
     Dosage: UNK
     Dates: start: 20130614
  13. FLOLAN [Suspect]
     Active Substance: EPOPROSTENOL SODIUM
     Dosage: UNK

REACTIONS (14)
  - Abdominal distension [Unknown]
  - Dysentery [Unknown]
  - Nasopharyngitis [Unknown]
  - Pain in jaw [Unknown]
  - Application site scab [Unknown]
  - Nasal congestion [Unknown]
  - Epistaxis [Unknown]
  - Infusion site erythema [Unknown]
  - Flatulence [Unknown]
  - Catheterisation cardiac [Recovered/Resolved]
  - Medical device complication [Unknown]
  - Abdominal pain upper [Unknown]
  - Infusion site rash [Unknown]
  - Headache [Unknown]

NARRATIVE: CASE EVENT DATE: 20141201
